FAERS Safety Report 5837276-X (Version None)
Quarter: 2008Q3

REPORT INFORMATION
  Report Type: 
  Country: None (occurrence: None)
  Receive Date: 20080731
  Receipt Date: 20080609
  Transmission Date: 20090109
  Serious: No
  Sender: FDA-Public Use
  Company Number: US200806001901

PATIENT
  Age: 50 Year
  Sex: Female
  Weight: 76.6 kg

DRUGS (11)
  1. BYETTA [Suspect]
     Indication: TYPE 2 DIABETES MELLITUS
     Dosage: 5 UG, 2/D, SUBCUTANEOUS
     Route: 058
     Dates: start: 20080519, end: 20080605
  2. GLIMEPIRIDE [Concomitant]
  3. FENTANYL-100 [Concomitant]
  4. MORPHINE [Concomitant]
  5. LISINOPRIL [Concomitant]
  6. IBUPROFEN [Concomitant]
  7. COMPAZINE [Concomitant]
  8. TRIAMTERENE AND HYDROCHLOROTHIAZIDE [Concomitant]
  9. ALBUTEROL [Concomitant]
  10. ESTROGENS SOL/INJ [Concomitant]
  11. XANAX [Concomitant]

REACTIONS (14)
  - ABDOMINAL PAIN UPPER [None]
  - BLOOD GLUCOSE DECREASED [None]
  - BLOOD GLUCOSE INCREASED [None]
  - FLUID RETENTION [None]
  - INJECTION SITE HAEMATOMA [None]
  - INJECTION SITE PAIN [None]
  - LIVER DISORDER [None]
  - MALAISE [None]
  - MOBILITY DECREASED [None]
  - NAUSEA [None]
  - NERVOUSNESS [None]
  - SOMNOLENCE [None]
  - THROAT IRRITATION [None]
  - URTICARIA [None]
